FAERS Safety Report 5621016-3 (Version None)
Quarter: 2008Q1

REPORT INFORMATION
  Report Type: 
  Country: None (occurrence: None)
  Receive Date: 20080208
  Receipt Date: 20080129
  Transmission Date: 20080703
  Serious: Yes (Death)
  Sender: FDA-Public Use
  Company Number: JP-PFIZER INC-2008009708

PATIENT
  Age: 75 Year
  Sex: Male

DRUGS (3)
  1. VFEND [Suspect]
     Indication: BRONCHOPULMONARY ASPERGILLOSIS
     Dosage: DAILY DOSE:320MG
     Route: 042
     Dates: start: 20071218, end: 20080103
  2. VFEND [Suspect]
     Dosage: DAILY DOSE:320MG
     Route: 042
     Dates: start: 20080109, end: 20080124
  3. VFEND [Suspect]
     Indication: BRONCHOPULMONARY ASPERGILLOSIS
     Dosage: DAILY DOSE:400MG
     Route: 048
     Dates: start: 20080104, end: 20080108

REACTIONS (1)
  - ALTERED STATE OF CONSCIOUSNESS [None]
